FAERS Safety Report 18462587 (Version 1)
Quarter: 2020Q4

REPORT INFORMATION
  Report Type: Spontaneous
  Country: FR (occurrence: FR)
  Receive Date: 20201104
  Receipt Date: 20201104
  Transmission Date: 20210114
  Serious: Yes (Other)
  Sender: FDA-Public Use
  Company Number: FR-PFIZER INC-2020422268

PATIENT
  Age: 36 Year
  Sex: Female

DRUGS (4)
  1. TRAMADOL. [Suspect]
     Active Substance: TRAMADOL
     Indication: MULTIPLE SCLEROSIS
     Dosage: UNK
     Route: 048
     Dates: start: 2015
  2. SERESTA [Suspect]
     Active Substance: OXAZEPAM
     Dosage: UNK
     Route: 048
     Dates: start: 2016
  3. LYRICA [Suspect]
     Active Substance: PREGABALIN
     Indication: MULTIPLE SCLEROSIS
     Dosage: UNK
     Route: 048
     Dates: start: 2015
  4. RIVOTRIL [Suspect]
     Active Substance: CLONAZEPAM
     Indication: MULTIPLE SCLEROSIS
     Dosage: UNK
     Route: 048
     Dates: end: 202003

REACTIONS (3)
  - Off label use [Unknown]
  - Product use in unapproved indication [Unknown]
  - Drug use disorder [Not Recovered/Not Resolved]

NARRATIVE: CASE EVENT DATE: 2015
